FAERS Safety Report 6386026-X (Version None)
Quarter: 2009Q4

REPORT INFORMATION
  Report Type: 
  Country: None (occurrence: None)
  Receive Date: 20091002
  Receipt Date: 20081117
  Transmission Date: 20100525
  Serious: No
  Sender: FDA-Public Use
  Company Number: US-ASTRAZENECA-2008UW25836

PATIENT
  Age: 55 Year
  Sex: Female
  Weight: 53.5 kg

DRUGS (4)
  1. ARIMIDEX [Suspect]
     Indication: BREAST CANCER
     Route: 048
     Dates: start: 20071125
  2. CELEXA [Concomitant]
  3. ATIVAN [Concomitant]
  4. NIASPAN [Concomitant]

REACTIONS (5)
  - ARTHRALGIA [None]
  - BLOOD CHOLESTEROL INCREASED [None]
  - HEART RATE IRREGULAR [None]
  - HYPOAESTHESIA ORAL [None]
  - INSOMNIA [None]
